FAERS Safety Report 16762558 (Version 2)
Quarter: 2019Q3

REPORT INFORMATION
  Report Type: Spontaneous
  Country: GB (occurrence: GB)
  Receive Date: 20190831
  Receipt Date: 20190905
  Transmission Date: 20191005
  Serious: Yes (Other)
  Sender: FDA-Public Use
  Company Number: GB-ADVANZ PHARMA-201908000018

PATIENT

DRUGS (2)
  1. PREDNISOLONE. [Suspect]
     Active Substance: PREDNISOLONE
     Dosage: DOSE TAPERED
  2. PREDNISOLONE. [Suspect]
     Active Substance: PREDNISOLONE
     Indication: THYROIDITIS
     Dosage: 40 MG

REACTIONS (3)
  - Mycobacterium chelonae infection [Unknown]
  - Oedema peripheral [Recovering/Resolving]
  - Myopathy [Unknown]
